FAERS Safety Report 4312422-8 (Version None)
Quarter: 2004Q1

REPORT INFORMATION
  Report Type: 
  Country: None (occurrence: None)
  Receive Date: 20040304
  Receipt Date: 20040304
  Transmission Date: 20041129
  Serious: Yes (Hospitalization)
  Sender: FDA-Public Use
  Company Number: None

PATIENT
  Age: 82 Year
  Sex: Male
  Weight: 86.6 kg

DRUGS (1)
  1. GATIFLOXACIN [Suspect]
     Dosage: 400 MG DAILY ORAL
     Route: 048
     Dates: start: 20031012, end: 20031018

REACTIONS (1)
  - CLOSTRIDIUM COLITIS [None]
